FAERS Safety Report 15983705 (Version 1)
Quarter: 2019Q1

REPORT INFORMATION
  Report Type: Spontaneous
  Country: US (occurrence: US)
  Receive Date: 20190219
  Receipt Date: 20190219
  Transmission Date: 20190418
  Serious: No
  Sender: FDA-Public Use
  Company Number: None

PATIENT
  Age: 35 Year
  Sex: Female
  Weight: 108 kg

DRUGS (4)
  1. CALMS FORTE SLEEP AID. [Concomitant]
  2. BOTOX FOR MIGRAINE [Concomitant]
  3. AIMOVIG [Suspect]
     Active Substance: ERENUMAB-AOOE
     Indication: MIGRAINE
     Dosage: ?          QUANTITY:1 INJECTION(S);OTHER FREQUENCY:1 A MONTHS;?
     Route: 030
     Dates: start: 20190215
  4. ATENOLOL 50 MG, [Concomitant]

REACTIONS (2)
  - Fatigue [None]
  - Pruritus [None]

NARRATIVE: CASE EVENT DATE: 20190216
